FAERS Safety Report 23321420 (Version 1)
Quarter: 2023Q4

REPORT INFORMATION
  Report Type: Spontaneous
  Country: GB (occurrence: GB)
  Receive Date: 20231220
  Receipt Date: 20231220
  Transmission Date: 20240110
  Serious: Yes (Other)
  Sender: FDA-Public Use
  Company Number: None

PATIENT

DRUGS (1)
  1. DULOXETINE HYDROCHLORIDE [Suspect]
     Active Substance: DULOXETINE HYDROCHLORIDE
     Indication: Product used for unknown indication
     Dosage: 90 MG, UNKNOWN
     Route: 065

REACTIONS (6)
  - Frustration tolerance decreased [Unknown]
  - Depression [Unknown]
  - Suicidal ideation [Unknown]
  - Hypersomnia [Unknown]
  - Anxiety [Unknown]
  - Anger [Unknown]
